FAERS Safety Report 16477222 (Version 1)
Quarter: 2019Q2

REPORT INFORMATION
  Report Type: Spontaneous
  Country: ES (occurrence: ES)
  Receive Date: 20190626
  Receipt Date: 20190626
  Transmission Date: 20190711
  Serious: Yes (Life-Threatening)
  Sender: FDA-Public Use
  Company Number: ES-TEVA-2019-ES-1068645

PATIENT
  Age: 18 Month
  Sex: Female
  Weight: 5.4 kg

DRUGS (5)
  1. LEVOFLOXACINO (2791A) [Suspect]
     Active Substance: LEVOFLOXACIN
     Route: 048
     Dates: start: 20190428, end: 20190506
  2. AMLODIPINO (2503A) [Suspect]
     Active Substance: AMLODIPINE BESYLATE
     Dosage: .6 MILLIGRAM DAILY;
     Route: 048
     Dates: start: 20190418, end: 20190505
  3. ENOXAPARINA SODICA (2482SO) [Suspect]
     Active Substance: ENOXAPARIN SODIUM
     Dosage: 8 MILLIGRAM DAILY;
     Route: 058
     Dates: start: 20190417, end: 20190504
  4. MELATONINA (90496A) [Suspect]
     Active Substance: MELATONIN
     Dosage: .6 MILLIGRAM DAILY;
     Route: 048
     Dates: start: 20190423, end: 20190504
  5. SEPTRIN PEDIATRICO 8 MG/40 MG/ML SUSPENSION ORAL , 1 FRASCO DE 100 ML [Suspect]
     Active Substance: SULFAMETHOXAZOLE\TRIMETHOPRIM
     Dosage: 1.7 ML DAILY;
     Route: 048
     Dates: start: 20190423, end: 20190507

REACTIONS (1)
  - Thrombocytopenia [Recovered/Resolved]

NARRATIVE: CASE EVENT DATE: 20190506
